FAERS Safety Report 12194848 (Version 1)
Quarter: 2016Q1

REPORT INFORMATION
  Report Type: Spontaneous
  Country: US (occurrence: None)
  Receive Date: 20160318
  Receipt Date: 20160318
  Transmission Date: 20160526
  Serious: Yes (Hospitalization)
  Sender: FDA-Public Use
  Company Number: None

PATIENT
  Age: 77 Year
  Sex: Male

DRUGS (2)
  1. TEMOZOLOMIDE 5 MG SANDOZ [Suspect]
     Active Substance: TEMOZOLOMIDE
     Indication: BRAIN NEOPLASM MALIGNANT
     Dosage: 2 OF 5 MG
     Route: 048
     Dates: start: 20160126
  2. TEMOZOLOMIDE 140MG SANDOZ [Suspect]
     Active Substance: TEMOZOLOMIDE
     Dosage: 1 OF 140 MG QD PO
     Route: 048
     Dates: start: 20160125

REACTIONS (1)
  - Myocardial infarction [None]

NARRATIVE: CASE EVENT DATE: 20160315
